FAERS Safety Report 7337634-0 (Version None)
Quarter: 2011Q1

REPORT INFORMATION
  Report Type: 
  Country: None (occurrence: None)
  Receive Date: 20110308
  Receipt Date: 20100111
  Transmission Date: 20110831
  Serious: No
  Sender: FDA-Public Use
  Company Number: US-BAYER-201010934NA

PATIENT
  Sex: Female

DRUGS (3)
  1. FLAGYL [Concomitant]
     Indication: BACTERIAL INFECTION
  2. ANTIBIOTICS [Concomitant]
     Indication: BACTERIAL INFECTION
  3. MIRENA [Suspect]
     Indication: CONTRACEPTION
     Dosage: 20 ?G/D, CONT
     Route: 015
     Dates: start: 20070101

REACTIONS (1)
  - BACTERIAL INFECTION [None]
